FAERS Safety Report 16589564 (Version 1)
Quarter: 2019Q3

REPORT INFORMATION
  Report Type: Spontaneous
  Country: DE (occurrence: DE)
  Receive Date: 20190718
  Receipt Date: 20190718
  Transmission Date: 20191004
  Serious: Yes (Hospitalization)
  Sender: FDA-Public Use
  Company Number: DE-TEVA-2019-DE-1077991

PATIENT
  Age: 51 Year
  Sex: Female

DRUGS (5)
  1. LAMOTRIGIN [Suspect]
     Active Substance: LAMOTRIGINE
     Dosage: 100 MG, 1-0-1-0?
     Route: 065
  2. ENALAPRIL [Concomitant]
     Active Substance: ENALAPRIL
     Dosage: NK
  3. SYNEUDON [Suspect]
     Active Substance: AMITRIPTYLINE HYDROCHLORIDE
     Dosage: NK
  4. AMLODIPIN [Concomitant]
     Active Substance: AMLODIPINE BESYLATE
     Dosage: NK
  5. DULOXETIN [Suspect]
     Active Substance: DULOXETINE
     Dosage: 30 MG, 1-0-0-0; SINCE 11.01.2018

REACTIONS (6)
  - Hyperventilation [Unknown]
  - Dyspnoea [Unknown]
  - Headache [Unknown]
  - Confusional state [Unknown]
  - Abdominal pain [Unknown]
  - Muscle spasms [Unknown]
